FAERS Safety Report 19224339 (Version 1)
Quarter: 2021Q2

REPORT INFORMATION
  Report Type: Spontaneous
  Country: US (occurrence: US)
  Receive Date: 20210505
  Receipt Date: 20210505
  Transmission Date: 20210717
  Serious: No
  Sender: FDA-Public Use
  Company Number: US-ROCHE-2597045

PATIENT
  Sex: Male

DRUGS (3)
  1. ESBRIET [Suspect]
     Active Substance: PIRFENIDONE
     Indication: IDIOPATHIC PULMONARY FIBROSIS
     Dosage: TAKE 1 TABLET 3 TIMES DAILY FOR A WEEK WITH MEALS
     Route: 048
  2. ESBRIET [Suspect]
     Active Substance: PIRFENIDONE
     Dosage: TAKE 3 TABLETS 3 TIMES DAILY WITH MEALS
     Route: 048
  3. ESBRIET [Suspect]
     Active Substance: PIRFENIDONE
     Dosage: TAKE 2 TABLETS THREE TIMES DAILY FOR A WEEK WITH MEALS
     Route: 048

REACTIONS (2)
  - Product dose omission in error [Unknown]
  - No adverse event [Unknown]
